FAERS Safety Report 17065610 (Version 5)
Quarter: 2019Q4

REPORT INFORMATION
  Report Type: Spontaneous
  Country: US (occurrence: US)
  Receive Date: 20191122
  Receipt Date: 20191212
  Transmission Date: 20200122
  Serious: Yes (Other)
  Sender: FDA-Public Use
  Company Number: US-PFIZER INC-2019502945

PATIENT
  Age: 70 Year
  Sex: Female
  Weight: 99.79 kg

DRUGS (1)
  1. FLECTOR [Suspect]
     Active Substance: DICLOFENAC EPOLAMINE
     Indication: PAIN IN EXTREMITY
     Dosage: 1.3 MG, 2X/DAY (1.3 MG PATCH APPLY EVERY 12 HOURS)
     Route: 062
     Dates: start: 2018, end: 2018

REACTIONS (7)
  - Foot deformity [Unknown]
  - Hypoacusis [Unknown]
  - Osteoarthritis [Unknown]
  - Disorientation [Unknown]
  - Emotional disorder [Unknown]
  - Expired product administered [Unknown]
  - Pain [Unknown]
